FAERS Safety Report 6147643-5 (Version None)
Quarter: 2009Q2

REPORT INFORMATION
  Report Type: 
  Country: None (occurrence: None)
  Receive Date: 20090408
  Receipt Date: 20090401
  Transmission Date: 20091009
  Serious: Yes (Other)
  Sender: FDA-Public Use
  Company Number: CA-SANOFI-SYNTHELABO-F01200900317

PATIENT
  Sex: Male

DRUGS (5)
  1. IRINOTECAN HCL [Suspect]
     Route: 042
  2. FOLINIC ACID [Suspect]
     Route: 065
  3. FLUOROURACIL [Suspect]
     Route: 065
  4. XELODA [Suspect]
     Route: 042
  5. OXALIPLATIN [Suspect]
     Indication: COLON CANCER METASTATIC
     Route: 042

REACTIONS (1)
  - DISEASE PROGRESSION [None]
